FAERS Safety Report 5398409-5 (Version None)
Quarter: 2007Q3

REPORT INFORMATION
  Report Type: 
  Country: None (occurrence: None)
  Receive Date: 20070726
  Receipt Date: 20070321
  Transmission Date: 20080115
  Serious: No
  Sender: FDA-Public Use
  Company Number: US-AMGEN-KDL215974

PATIENT
  Sex: Male

DRUGS (4)
  1. PROCRIT [Suspect]
     Indication: ANAEMIA OF MALIGNANT DISEASE
     Dates: start: 20070202
  2. REVLIMID [Concomitant]
  3. ASPIRIN [Concomitant]
  4. AREDIA [Concomitant]

REACTIONS (2)
  - HAEMOGLOBIN DECREASED [None]
  - SERUM FERRITIN INCREASED [None]
